FAERS Safety Report 6093714-1 (Version None)
Quarter: 2009Q1

REPORT INFORMATION
  Report Type: 
  Country: None (occurrence: None)
  Receive Date: 20090223
  Receipt Date: 20090223
  Transmission Date: 20090719
  Serious: Yes (Hospitalization, Other)
  Sender: FDA-Public Use
  Company Number: None

PATIENT
  Age: 35 Year
  Sex: Female
  Weight: 56.246 kg

DRUGS (1)
  1. LEVAQUIN [Suspect]
     Dosage: 500MG ONCE DAILY
     Dates: start: 20081126, end: 20081130

REACTIONS (2)
  - PERIARTHRITIS [None]
  - TENDONITIS [None]
